FAERS Safety Report 10616452 (Version 2)
Quarter: 2014Q4

REPORT INFORMATION
  Report Type: Spontaneous
  Country: US (occurrence: US)
  Receive Date: 20141201
  Receipt Date: 20141230
  Transmission Date: 20150529
  Serious: No
  Sender: FDA-Public Use
  Company Number: US-ELI_LILLY_AND_COMPANY-US201411007457

PATIENT
  Age: 38 Year
  Sex: Female
  Weight: 83 kg

DRUGS (9)
  1. TRAMADOL [Concomitant]
     Active Substance: TRAMADOL
  2. VITAMIN D [Concomitant]
     Active Substance: CHOLECALCIFEROL
  3. FOLIC ACID. [Concomitant]
     Active Substance: FOLIC ACID
  4. METHOTREXATE [Suspect]
     Active Substance: METHOTREXATE
     Dosage: 7.5 MG, UNKNOWN
     Route: 065
     Dates: start: 20140929, end: 20141023
  5. CYMBALTA [Suspect]
     Active Substance: DULOXETINE HYDROCHLORIDE
     Indication: DEPRESSION
     Dosage: UNK, UNKNOWN
     Route: 065
     Dates: start: 20140625, end: 20140723
  6. METHOTREXATE [Suspect]
     Active Substance: METHOTREXATE
     Indication: RHEUMATOID ARTHRITIS
     Dosage: 17.5 MG, UNKNOWN
     Route: 065
     Dates: start: 20140115, end: 20140625
  7. METHOTREXATE [Suspect]
     Active Substance: METHOTREXATE
     Dosage: 17.5 MG, UNKNOWN
     Route: 065
     Dates: start: 20140716, end: 20140725
  8. METHOTREXATE [Suspect]
     Active Substance: METHOTREXATE
     Dosage: 7.5 MG, UNKNOWN
     Route: 065
     Dates: start: 20141117
  9. LEVOTHYROXINE [Concomitant]
     Active Substance: LEVOTHYROXINE
     Indication: THYROID NEOPLASM
     Dosage: UNK
     Dates: start: 20140221

REACTIONS (2)
  - Alanine aminotransferase increased [Unknown]
  - Aspartate aminotransferase increased [Unknown]

NARRATIVE: CASE EVENT DATE: 20140723
